FAERS Safety Report 8512567 (Version 2)
Quarter: 2012Q4

REPORT INFORMATION
  Report Type: 
  Country: US (occurrence: US)
  Receive Date: 20120413
  Receipt Date: 20121102
  Transmission Date: 20130627
  Serious: No
  Sender: FDA-Public Use
  Company Number: US-ASTRAZENECA-2012SE13980

PATIENT
  Age: 63 Year
  Sex: Female
  Weight: 81.6 kg

DRUGS (5)
  1. NEXIUM [Suspect]
     Indication: GASTRITIS
     Dosage: TWO TIMES A DAY
     Route: 048
  2. TOPROL XL [Suspect]
     Indication: HYPERTENSION
     Route: 048
  3. TOPROL XL [Suspect]
     Indication: HYPERTENSION
     Dosage: GENERIC FORM
     Route: 048
     Dates: start: 2009
  4. CHOLESTEROL MEDICATIONS [Concomitant]
  5. METFORMIN [Concomitant]

REACTIONS (4)
  - Coeliac disease [Unknown]
  - Diarrhoea [Unknown]
  - Diabetes mellitus [Unknown]
  - Off label use [Unknown]
